FAERS Safety Report 6091572-2 (Version None)
Quarter: 2009Q1

REPORT INFORMATION
  Report Type: 
  Country: None (occurrence: None)
  Receive Date: 20090225
  Receipt Date: 20080130
  Transmission Date: 20090719
  Serious: No
  Sender: FDA-Public Use
  Company Number: A0704129A

PATIENT
  Age: 40 Year
  Sex: Female

DRUGS (2)
  1. VALTREX [Suspect]
     Dosage: 500MG PER DAY
     Route: 048
     Dates: start: 20080112, end: 20080112
  2. CYTOMEL [Concomitant]

REACTIONS (5)
  - ADVERSE REACTION [None]
  - DIARRHOEA [None]
  - MALAISE [None]
  - NAUSEA [None]
  - VOMITING [None]
